FAERS Safety Report 5069754-8 (Version None)
Quarter: 2006Q3

REPORT INFORMATION
  Report Type: 
  Country: None (occurrence: None)
  Receive Date: 20060803
  Receipt Date: 20050503
  Transmission Date: 20061208
  Serious: Yes (Hospitalization)
  Sender: FDA-Public Use
  Company Number: US-GLAXOSMITHKLINE-A0558199A

PATIENT
  Age: 37 Year
  Sex: Male

DRUGS (3)
  1. PAXIL [Suspect]
     Indication: ANXIETY
     Route: 048
     Dates: start: 20010101
  2. PAXIL CR [Suspect]
     Indication: ANXIETY
     Dosage: 12.5MG UNKNOWN
     Route: 048
  3. ALLEGRA [Concomitant]

REACTIONS (7)
  - DEHYDRATION [None]
  - DRUG WITHDRAWAL SYNDROME [None]
  - HEADACHE [None]
  - NAUSEA [None]
  - PARAESTHESIA [None]
  - VERTIGO [None]
  - VOMITING [None]
